FAERS Safety Report 8714206 (Version 3)
Quarter: 2012Q4

REPORT INFORMATION
  Report Type: 
  Country: JP (occurrence: JP)
  Receive Date: 20120809
  Receipt Date: 20121030
  Transmission Date: 20130627
  Serious: Yes (Death)
  Sender: FDA-Public Use
  Company Number: JP-AMGEN-JPNSP2012049182

PATIENT
  Age: 85 Year
  Sex: Male
  Weight: 53 kg

DRUGS (2)
  1. RANMARK [Suspect]
     Indication: METASTASES TO BONE
     Route: 058
     Dates: start: 20120704, end: 20120704
  2. LOXONIN [Concomitant]
     Indication: METASTASES TO BONE
     Route: 065
     Dates: start: 20120620

REACTIONS (1)
  - Sudden death [Fatal]
